FAERS Safety Report 19916417 (Version 2)
Quarter: 2021Q4

REPORT INFORMATION
  Report Type: Spontaneous
  Country: US (occurrence: US)
  Receive Date: 20211005
  Receipt Date: 20211102
  Transmission Date: 20220303
  Serious: No
  Sender: FDA-Public Use
  Company Number: US-BIOVITRUM-2021US8794

PATIENT
  Sex: Female

DRUGS (4)
  1. DOPTELET [Suspect]
     Active Substance: AVATROMBOPAG MALEATE
     Indication: Immune thrombocytopenia
     Route: 065
     Dates: start: 202107
  2. PREDNISOLONE [Suspect]
     Active Substance: PREDNISOLONE
     Indication: Product used for unknown indication
     Dosage: 60 MG, CURRENTLY TAKING 10 MG FOR THE NEXT WEEK, FOLLOWING WEEK 5 MG EVERY OTHER DAY THEN DISCONTINU
     Dates: start: 202106
  3. AMLODIPINE [Concomitant]
     Active Substance: AMLODIPINE BESYLATE
     Indication: Hypertension
  4. LASIX [Concomitant]
     Active Substance: FUROSEMIDE
     Indication: Fluid retention

REACTIONS (1)
  - Contusion [Recovered/Resolved]
